FAERS Safety Report 21927792 (Version 1)
Quarter: 2023Q1

REPORT INFORMATION
  Report Type: Spontaneous
  Country: DE (occurrence: DE)
  Receive Date: 20230130
  Receipt Date: 20230130
  Transmission Date: 20230417
  Serious: Yes (Other)
  Sender: FDA-Public Use
  Company Number: DE-JNJFOC-20230145007

PATIENT
  Age: 70 Year
  Sex: Male

DRUGS (2)
  1. TECLISTAMAB [Suspect]
     Active Substance: TECLISTAMAB
     Indication: Plasma cell myeloma
     Dosage: SECOND DOSE RECEIVED ON 05-JUL-2021,
     Route: 065
     Dates: start: 20210628
  2. DARATUMUMAB [Suspect]
     Active Substance: DARATUMUMAB
     Indication: Plasma cell myeloma
     Route: 065
     Dates: start: 202003

REACTIONS (6)
  - Pyrexia [Unknown]
  - Diarrhoea [Unknown]
  - Cytokine release syndrome [Unknown]
  - Blood immunoglobulin G increased [Unknown]
  - Escherichia infection [Unknown]
  - Chills [Unknown]
